FAERS Safety Report 26179031 (Version 1)
Quarter: 2025Q4

REPORT INFORMATION
  Report Type: Spontaneous
  Country: EU (occurrence: EU)
  Receive Date: 20251219
  Receipt Date: 20251219
  Transmission Date: 20260118
  Serious: Yes (Other)
  Sender: RANBAXY
  Company Number: EU-SUN PHARMACEUTICAL INDUSTRIES LTD-2025R1-542394

PATIENT
  Age: 9 Year
  Sex: Male

DRUGS (2)
  1. HYDROCORTISONE [Suspect]
     Active Substance: HYDROCORTISONE
     Indication: Skin reaction
     Dosage: UNK, 1% FOR SEVERAL WEEKS
     Route: 061
  2. FLUTICASONE [Concomitant]
     Active Substance: FLUTICASONE
     Indication: Skin reaction
     Dosage: PUFFS 50 MCG 2 ? 2

REACTIONS (1)
  - Adrenal insufficiency [Unknown]
